FAERS Safety Report 7182409-9 (Version None)
Quarter: 2010Q4

REPORT INFORMATION
  Report Type: 
  Country: None (occurrence: None)
  Receive Date: 20101221
  Receipt Date: 20100512
  Transmission Date: 20110411
  Serious: No
  Sender: FDA-Public Use
  Company Number: US-AMGEN-KDL412031

PATIENT

DRUGS (3)
  1. ENBREL [Suspect]
     Indication: RHEUMATOID ARTHRITIS
     Dosage: 50 MG, QWK
     Route: 058
     Dates: start: 20100322
  2. HYDROXYCHLOROQUINE SULFATE [Concomitant]
     Dosage: 200 MG, QD
  3. METHOTREXATE [Concomitant]
     Dosage: 15 MG, QWK
     Route: 048

REACTIONS (6)
  - DRUG INEFFECTIVE [None]
  - INJECTION SITE URTICARIA [None]
  - NODULE ON EXTREMITY [None]
  - OCULAR HYPERTENSION [None]
  - POOR QUALITY SLEEP [None]
  - RHEUMATOID ARTHRITIS [None]
